FAERS Safety Report 6790497-4 (Version None)
Quarter: 2010Q2

REPORT INFORMATION
  Report Type: 
  Country: None (occurrence: None)
  Receive Date: 20100624
  Receipt Date: 20100614
  Transmission Date: 20101027
  Serious: Yes (Other)
  Sender: FDA-Public Use
  Company Number: JP-PFIZER INC-2007012658

PATIENT
  Age: 53 Year
  Sex: Female

DRUGS (2)
  1. DOXORUBICIN HCL [Suspect]
     Indication: BREAST CANCER
     Dosage: 50 MG/M2, MONTHLY
     Dates: start: 20030901
  2. TAXOTERE [Suspect]
     Indication: BREAST CANCER
     Dosage: 60 MG/M2, MONTHLY
     Dates: start: 20030901

REACTIONS (1)
  - SCLERODERMA [None]
